FAERS Safety Report 5124492-8 (Version None)
Quarter: 2006Q4

REPORT INFORMATION
  Report Type: 
  Country: None (occurrence: None)
  Receive Date: 20060821
  Receipt Date: 20060531
  Transmission Date: 20070319
  Serious: No
  Sender: FDA-Public Use
  Company Number: TPA2006A00572

PATIENT
  Age: 49 Year
  Sex: Female
  Weight: 48.9885 kg

DRUGS (8)
  1. ROZEREM [Suspect]
     Indication: INSOMNIA
     Dosage: 8 MG, HS PER ORAL
     Route: 048
     Dates: start: 20060323, end: 20060410
  2. VALIUM [Concomitant]
  3. LORTAB [Concomitant]
  4. AMITRIPTYLINE HCL [Concomitant]
  5. ALBUTEROL INHALER (SALBUTAMOL) [Concomitant]
  6. MAXALT [Concomitant]
  7. CORGARD [Concomitant]
  8. PERCOCET [Concomitant]

REACTIONS (2)
  - HEART RATE INCREASED [None]
  - PALPITATIONS [None]
